FAERS Safety Report 22791414 (Version 6)
Quarter: 2023Q4

REPORT INFORMATION
  Report Type: Spontaneous
  Country: US (occurrence: US)
  Receive Date: 20230807
  Receipt Date: 20231027
  Transmission Date: 20240110
  Serious: Yes (Other)
  Sender: FDA-Public Use
  Company Number: US-JNJFOC-20230755030

PATIENT
  Sex: Female

DRUGS (7)
  1. TECLISTAMAB [Suspect]
     Active Substance: TECLISTAMAB
     Indication: Plasma cell myeloma
     Route: 065
     Dates: start: 20230608
  2. TECLISTAMAB [Suspect]
     Active Substance: TECLISTAMAB
     Route: 065
  3. TECLISTAMAB [Suspect]
     Active Substance: TECLISTAMAB
     Route: 065
  4. CARFILZOMIB [Suspect]
     Active Substance: CARFILZOMIB
  5. DIETARY SUPPLEMENT\RESVERATROL [Interacting]
     Active Substance: DIETARY SUPPLEMENT\RESVERATROL
  6. CURCUMA LONGA (TURMERIC) RHIZOME EXTRACT [Interacting]
     Active Substance: CURCUMA LONGA (TURMERIC) RHIZOME EXTRACT
  7. MENATETRENONE [Interacting]
     Active Substance: MENATETRENONE

REACTIONS (13)
  - Therapeutic product effect decreased [Unknown]
  - Pruritus [Unknown]
  - Hyperhidrosis [Unknown]
  - Abdominal pain upper [Unknown]
  - Fatigue [Unknown]
  - Hypersomnia [Unknown]
  - Pharyngeal ulceration [Not Recovered/Not Resolved]
  - Abnormal faeces [Unknown]
  - Gastrooesophageal reflux disease [Recovered/Resolved]
  - Nausea [Unknown]
  - Rash [Unknown]
  - Drug interaction [Unknown]
  - Injection site erythema [Unknown]

NARRATIVE: CASE EVENT DATE: 20230822
